FAERS Safety Report 12790316 (Version 2)
Quarter: 2016Q4

REPORT INFORMATION
  Report Type: Spontaneous
  Country: US (occurrence: US)
  Receive Date: 20160928
  Receipt Date: 20161031
  Transmission Date: 20170207
  Serious: Yes (Hospitalization, Other)
  Sender: FDA-Public Use
  Company Number: US-AMGEN-USASP2016129963

PATIENT
  Age: 18 Year
  Sex: Female

DRUGS (1)
  1. ENBREL [Suspect]
     Active Substance: ETANERCEPT
     Indication: JUVENILE IDIOPATHIC ARTHRITIS
     Dosage: UNK
     Route: 065

REACTIONS (5)
  - Pneumonia mycoplasmal [Unknown]
  - White blood cell count abnormal [Unknown]
  - Parvovirus infection [Unknown]
  - Weight decreased [Unknown]
  - Infectious mononucleosis [Unknown]

NARRATIVE: CASE EVENT DATE: 2006
